FAERS Safety Report 22219408 (Version 1)
Quarter: 2023Q2

REPORT INFORMATION
  Report Type: Spontaneous
  Country: IT (occurrence: IT)
  Receive Date: 20230417
  Receipt Date: 20230417
  Transmission Date: 20230722
  Serious: Yes (Other)
  Sender: FDA-Public Use
  Company Number: IT-MYLANLABS-2023M1039697

PATIENT
  Age: 13 Year
  Sex: Male

DRUGS (5)
  1. CETIRIZINE [Suspect]
     Active Substance: CETIRIZINE HYDROCHLORIDE
     Indication: Prophylaxis
     Dosage: 7.5 MILLIGRAM (GIVEN NIGHT BEFORE THE INFUSION)
     Route: 048
  2. CHLORPHENIRAMINE MALEATE [Suspect]
     Active Substance: CHLORPHENIRAMINE MALEATE
     Indication: Prophylaxis
     Dosage: 5 MILLIGRAM (GIVEN 30 MINUTES BEFORE THE INFUSION)
     Route: 042
  3. CHLORPHENIRAMINE MALEATE [Suspect]
     Active Substance: CHLORPHENIRAMINE MALEATE
     Indication: Urticaria
     Dosage: 5 MILLIGRAM (WAS GIVEN BETWEEN STEP 8 AND STEP 9 OF THE 12 STEP RAPID DESENSITISATION PROTOCOL)
     Route: 042
  4. IDURSULFASE [Concomitant]
     Active Substance: IDURSULFASE
     Indication: Mucopolysaccharidosis II
     Dosage: UNK, QW, INTRAVENOUS INFUSION (24MG IN 250ML SODIUM CHLORIDE GIVEN BY INTRAVENOUS...
     Route: 042
  5. SALINE [Concomitant]
     Active Substance: SODIUM CHLORIDE
     Indication: Vehicle solution use
     Dosage: UNK (24MG OF IDURSULFASE IN 250ML SODIUM CHLORIDE GIVEN BY INTRAVENOUS INFUSION...
     Route: 042

REACTIONS (1)
  - Drug ineffective [Unknown]
